FAERS Safety Report 5300634-6 (Version None)
Quarter: 2007Q2

REPORT INFORMATION
  Report Type: 
  Country: None (occurrence: None)
  Receive Date: 20070418
  Receipt Date: 20070403
  Transmission Date: 20071010
  Serious: Yes (Death)
  Sender: FDA-Public Use
  Company Number: AU-GENENTECH-229710

PATIENT
  Sex: Female
  Weight: 56 kg

DRUGS (7)
  1. BEVACIZUMAB [Suspect]
     Indication: COLORECTAL CANCER METASTATIC
     Dosage: 420 MG, Q3W
     Route: 042
     Dates: start: 20060815
  2. MITOMYCIN-C BULK POWDER [Suspect]
     Indication: COLORECTAL CANCER METASTATIC
     Dates: start: 20060815
  3. XELODA [Suspect]
     Indication: COLORECTAL CANCER METASTATIC
     Dosage: 2000 MG/M2, QD
     Route: 048
     Dates: start: 20060815, end: 20060828
  4. LOPERAMIDE HCL [Concomitant]
     Indication: DRUG USE FOR UNKNOWN INDICATION
  5. LIDOCAINE [Concomitant]
     Indication: DRUG USE FOR UNKNOWN INDICATION
  6. NYSTATIN [Concomitant]
     Indication: DRUG USE FOR UNKNOWN INDICATION
  7. PYRIDOXINE HCL [Concomitant]
     Indication: DRUG USE FOR UNKNOWN INDICATION

REACTIONS (1)
  - MYOCARDITIS [None]
